FAERS Safety Report 8577420-7 (Version None)
Quarter: 2012Q3

REPORT INFORMATION
  Report Type: 
  Country: None (occurrence: None)
  Receive Date: 20120807
  Receipt Date: 20120730
  Transmission Date: 20120928
  Serious: Yes (Hospitalization)
  Sender: FDA-Public Use
  Company Number: US-ABBOTT-12P-163-0962802-00

PATIENT
  Sex: Female
  Weight: 104.42 kg

DRUGS (5)
  1. COLESTIPOL HYDROCHLORIDE [Concomitant]
     Indication: GASTRIC PH DECREASED
  2. APRAZOLAM [Concomitant]
     Indication: ANXIETY
  3. AMBIEN [Concomitant]
     Indication: PRODUCT USED FOR UNKNOWN INDICATION
  4. HUMIRA [Suspect]
     Indication: CROHN'S DISEASE
     Dates: start: 20120531
  5. UNKNOWN NAUSEA MEDICATION [Concomitant]
     Indication: PRODUCT USED FOR UNKNOWN INDICATION

REACTIONS (8)
  - CROHN'S DISEASE [None]
  - ANORECTAL INFECTION [None]
  - DIARRHOEA HAEMORRHAGIC [None]
  - PROCTALGIA [None]
  - DEHYDRATION [None]
  - BLOOD IRON DECREASED [None]
  - FISTULA [None]
  - MICTURITION URGENCY [None]
